FAERS Safety Report 17853216 (Version 1)
Quarter: 2020Q2

REPORT INFORMATION
  Report Type: Spontaneous
  Country: US (occurrence: US)
  Receive Date: 20200602
  Receipt Date: 20200602
  Transmission Date: 20200714
  Serious: No
  Sender: FDA-Public Use
  Company Number: US-FOUNDATIONCONSUMERHC-2020-US-000507

PATIENT
  Age: 39 Year
  Sex: Female
  Weight: 99.79 kg

DRUGS (3)
  1. ELDERBERRY [Concomitant]
     Active Substance: HERBALS
  2. PLAN B ONE-STEP [Suspect]
     Active Substance: LEVONORGESTREL
     Indication: POST COITAL CONTRACEPTION
     Dosage: 1.5MG
     Route: 048
     Dates: start: 20191214, end: 20191214
  3. CHEWABLE MULTIVITAMIN [Concomitant]

REACTIONS (1)
  - Menstruation delayed [Not Recovered/Not Resolved]

NARRATIVE: CASE EVENT DATE: 20200104
